FAERS Safety Report 22986888 (Version 2)
Quarter: 2023Q4

REPORT INFORMATION
  Report Type: Spontaneous
  Country: GR (occurrence: GR)
  Receive Date: 20230926
  Receipt Date: 20231106
  Transmission Date: 20240110
  Serious: Yes (Death, Other)
  Sender: FDA-Public Use
  Company Number: GR-002147023-NVSC2023GR201397

PATIENT

DRUGS (1)
  1. RUXOLITINIB [Suspect]
     Active Substance: RUXOLITINIB
     Indication: Myelofibrosis
     Dosage: 15 MG, BID
     Route: 048

REACTIONS (3)
  - Death [Fatal]
  - Neoplasm malignant [Unknown]
  - Second primary malignancy [Unknown]
